FAERS Safety Report 8421704-X (Version None)
Quarter: 2012Q2

REPORT INFORMATION
  Report Type: 
  Country: None (occurrence: None)
  Receive Date: 20120608
  Receipt Date: 20110907
  Transmission Date: 20120825
  Serious: No
  Sender: FDA-Public Use
  Company Number: US-GLAXOSMITHKLINE-A0943713A

PATIENT
  Age: 19 Year
  Sex: Male

DRUGS (2)
  1. ALTABAX [Suspect]
     Indication: VASCULITIS
     Dosage: 1APP PER DAY
     Route: 061
     Dates: start: 20110906
  2. ANTIBIOTIC [Concomitant]
     Route: 048

REACTIONS (1)
  - PRURITUS [None]
